FAERS Safety Report 10070813 (Version 1)
Quarter: 2014Q2

REPORT INFORMATION
  Report Type: Spontaneous
  Country: US (occurrence: None)
  Receive Date: 20140408
  Receipt Date: 20140408
  Transmission Date: 20141212
  Serious: Yes (Life-Threatening, Other)
  Sender: FDA-Public Use
  Company Number: 001704693A

PATIENT
  Sex: Male

DRUGS (3)
  1. PROACTIV + SKIN SMOOTHING EXFOLIATOR [Suspect]
     Indication: ACNE
     Dosage: TWICE DAILY DERMAL
     Dates: start: 20140307, end: 20140308
  2. PROACTIV  + PORE TARGETING TREATMENT [Suspect]
     Indication: ACNE
     Dosage: TWICE DAILY DERMAL
     Dates: start: 20140307, end: 20140308
  3. PROACTIV + COMPLEXION PERFECTING HYDRATOR [Suspect]
     Indication: ACNE
     Dosage: TWICE DAILY DERMAL
     Dates: start: 20140307, end: 20140308

REACTIONS (1)
  - Anaphylactic shock [None]
